FAERS Safety Report 8162413-4 (Version None)
Quarter: 2012Q1

REPORT INFORMATION
  Report Type: 
  Country: None (occurrence: None)
  Receive Date: 20120224
  Receipt Date: 20120222
  Transmission Date: 20120608
  Serious: Yes (Death, Other)
  Sender: FDA-Public Use
  Company Number: PHHY2011ES23987

PATIENT
  Age: 33 Year
  Sex: Female

DRUGS (4)
  1. TRETINOIN [Interacting]
     Indication: ACUTE PROMYELOCYTIC LEUKAEMIA
     Dosage: UNK UKN, UNK
  2. VORICONAZOLE [Interacting]
     Dosage: UNK UKN, UNK
  3. FLUCONAZOLE [Suspect]
     Dosage: UNK UKN, UNK
  4. DEXAMETHASONE [Concomitant]
     Dosage: UNK UKN, UNK

REACTIONS (13)
  - HEPATOTOXICITY [None]
  - SEPTIC SHOCK [None]
  - BLOOD BILIRUBIN INCREASED [None]
  - MULTI-ORGAN FAILURE [None]
  - DYSPNOEA [None]
  - ABDOMINAL DISTENSION [None]
  - ABDOMINAL PAIN [None]
  - DRUG INTERACTION [None]
  - DIARRHOEA [None]
  - ENTEROBACTER TEST POSITIVE [None]
  - GASTROINTESTINAL TOXICITY [None]
  - OESOPHAGEAL HYPOMOTILITY [None]
  - METABOLIC ACIDOSIS [None]
